FAERS Safety Report 12196844 (Version 1)
Quarter: 2016Q1

REPORT INFORMATION
  Report Type: Report from Study
  Country: DE (occurrence: DE)
  Receive Date: 20160321
  Receipt Date: 20160321
  Transmission Date: 20160526
  Serious: Yes (Hospitalization)
  Sender: FDA-Public Use
  Company Number: DE-GILEAD-2016-0204038

PATIENT
  Age: 74 Year
  Sex: Female
  Weight: 70 kg

DRUGS (10)
  1. TRIAM                              /00012501/ [Concomitant]
     Dosage: UNK
  2. SOFOSBUVIR [Suspect]
     Active Substance: SOFOSBUVIR
     Indication: CHRONIC HEPATITIS C
     Dosage: 400 MG, QD
     Route: 048
     Dates: start: 20150826, end: 20151117
  3. COPEGUS [Suspect]
     Active Substance: RIBAVIRIN
     Indication: CHRONIC HEPATITIS C
     Dosage: 400 MG, BID
     Route: 048
     Dates: start: 20150826, end: 20151104
  4. DHEA [Concomitant]
     Active Substance: PRASTERONE
     Dosage: 15 MG, QD
  5. GYNOKADIN                          /00045401/ [Concomitant]
     Dosage: UNK
  6. LORANO [Concomitant]
  7. CETIRIZIN [Concomitant]
     Active Substance: CETIRIZINE HYDROCHLORIDE
  8. MAGNESIUM [Concomitant]
     Active Substance: MAGNESIUM
     Dosage: UNK
  9. HIDRAFIL                           /02704701/ [Concomitant]
  10. CORTISON [Concomitant]
     Active Substance: CORTISONE ACETATE
     Dosage: UNK
     Dates: start: 20151021

REACTIONS (1)
  - Eczema [Recovering/Resolving]
